FAERS Safety Report 4389438-9 (Version None)
Quarter: 2004Q3

REPORT INFORMATION
  Report Type: 
  Country: None (occurrence: None)
  Receive Date: 20040702
  Receipt Date: 20040622
  Transmission Date: 20050211
  Serious: Yes (Other)
  Sender: FDA-Public Use
  Company Number: PHBS2004JP08384

PATIENT
  Age: 70 Year
  Sex: Female

DRUGS (3)
  1. NEORAL [Suspect]
     Indication: INTERSTITIAL LUNG DISEASE
     Dosage: 200 MG/D
     Route: 048
     Dates: start: 20040604, end: 20040601
  2. NEORAL [Suspect]
     Dosage: 175 MG/D
     Route: 048
     Dates: start: 20040601, end: 20040601
  3. PREDONINE [Suspect]
     Indication: INTERSTITIAL LUNG DISEASE
     Dosage: 60 MG/D
     Route: 048
     Dates: start: 20040604

REACTIONS (4)
  - BLOOD MAGNESIUM DECREASED [None]
  - MANIA [None]
  - PERSECUTORY DELUSION [None]
  - PSYCHIATRIC SYMPTOM [None]
